FAERS Safety Report 13628006 (Version 1)
Quarter: 2017Q2

REPORT INFORMATION
  Report Type: Spontaneous
  Country: DE (occurrence: DE)
  Receive Date: 20170607
  Receipt Date: 20170607
  Transmission Date: 20170830
  Serious: Yes (Other)
  Sender: FDA-Public Use
  Company Number: DE-TEVA-774095GER

PATIENT
  Age: 3 Decade
  Sex: Female
  Weight: 40 kg

DRUGS (3)
  1. QUETIAPINE. [Suspect]
     Active Substance: QUETIAPINE
     Indication: SCHIZOAFFECTIVE DISORDER
     Dosage: 150 MILLIGRAM DAILY;
     Route: 048
     Dates: start: 20160116, end: 20161010
  2. FOLIO FORTE [Concomitant]
     Active Substance: FOLIC ACID\VITAMINS
     Indication: PROPHYLAXIS OF NEURAL TUBE DEFECT
     Dosage: 0.8 MG/D (UP TO 0.4 MG/D)
     Route: 048
     Dates: start: 20160116, end: 20161010
  3. DINOPROSTON [Concomitant]
     Indication: LABOUR INDUCTION
     Route: 067

REACTIONS (1)
  - Gestational diabetes [Recovered/Resolved]
